FAERS Safety Report 10343582 (Version 2)
Quarter: 2014Q3

REPORT INFORMATION
  Report Type: Spontaneous
  Country: AU (occurrence: AU)
  Receive Date: 20140725
  Receipt Date: 20140905
  Transmission Date: 20150326
  Serious: Yes (Other)
  Sender: FDA-Public Use
  Company Number: AU-ASTRAZENECA-2014SE53935

PATIENT
  Age: 22 Year
  Sex: Female

DRUGS (19)
  1. SEROQUEL [Suspect]
     Active Substance: QUETIAPINE FUMARATE
     Indication: DEPRESSION
     Dosage: DOSE UNSPECIFIED
     Route: 048
  2. IMPLANON [Suspect]
     Active Substance: ETONOGESTREL
     Indication: CONTRACEPTIVE IMPLANT
     Dosage: DOSE UNSPECIFIED
     Route: 065
  3. LOVAN [Suspect]
     Active Substance: FLUOXETINE HYDROCHLORIDE
     Indication: DEPRESSION
     Dosage: DOSE UNSPECIFIED
     Route: 065
  4. SEROQUEL [Suspect]
     Active Substance: QUETIAPINE FUMARATE
     Indication: PERSONALITY DISORDER
     Dosage: DOSE UNSPECIFIED
     Route: 048
  5. COLOXYL [Suspect]
     Active Substance: DOCUSATE SODIUM
     Indication: IRRITABLE BOWEL SYNDROME
     Dosage: DOSE UNSPECIFIED
     Route: 065
  6. SEROQUEL [Suspect]
     Active Substance: QUETIAPINE FUMARATE
     Indication: DEPRESSION
     Dosage: DOSE UNSPECIFIED
     Route: 048
  7. SEROQUEL [Suspect]
     Active Substance: QUETIAPINE FUMARATE
     Indication: HALLUCINATION
     Dosage: DOSE UNSPECIFIED
     Route: 048
  8. OROXINE [Suspect]
     Active Substance: LEVOTHYROXINE SODIUM
     Indication: AUTOIMMUNE THYROIDITIS
     Dosage: DOSE UNSPECIFIED
     Route: 065
  9. AVAMYS [Suspect]
     Active Substance: FLUTICASONE FUROATE
     Indication: RHINITIS ALLERGIC
     Dosage: DOSE UNSPECIFIED
     Route: 065
  10. MAGNESIUM [Suspect]
     Active Substance: MAGNESIUM
     Indication: MINERAL SUPPLEMENTATION
     Dosage: DOSE UNSPECIFIED
     Route: 065
  11. DIABEX [Suspect]
     Active Substance: METFORMIN HYDROCHLORIDE
     Indication: POLYCYSTIC OVARIES
     Dosage: DOSE UNSPECIFIED
     Route: 065
  12. NEXIUM [Suspect]
     Active Substance: ESOMEPRAZOLE MAGNESIUM
     Indication: GASTROOESOPHAGEAL REFLUX DISEASE
     Dosage: DOSE UNSPECIFIED
     Route: 048
  13. FIBRE, DIETARY [Suspect]
     Active Substance: PSYLLIUM HUSK
     Indication: AUTOIMMUNE THYROIDITIS
     Dosage: DOSE UNSPECIFIED
     Route: 065
  14. PROBIOTICS [Suspect]
     Active Substance: PROBIOTICS NOS
     Indication: WEIGHT DECREASED
     Dosage: DOSE UNSPECIFIED
     Route: 065
  15. VENTOLIN [Suspect]
     Active Substance: ALBUTEROL SULFATE
     Indication: ASTHMA
     Dosage: DOSE UNSPECIFIED
     Route: 065
  16. SEROQUEL [Suspect]
     Active Substance: QUETIAPINE FUMARATE
     Indication: HALLUCINATION
     Dosage: DOSE UNSPECIFIED
     Route: 048
  17. IRON [Suspect]
     Active Substance: IRON
     Indication: MINERAL SUPPLEMENTATION
     Dosage: DOSE UNSPECIFIED
     Route: 065
  18. SEROQUEL [Suspect]
     Active Substance: QUETIAPINE FUMARATE
     Indication: PERSONALITY DISORDER
     Dosage: DOSE UNSPECIFIED
     Route: 048
  19. LOVAN [Suspect]
     Active Substance: FLUOXETINE HYDROCHLORIDE
     Indication: DEPRESSION
     Dosage: DOSE UNSPECIFIED
     Route: 065

REACTIONS (13)
  - Flat affect [Unknown]
  - Dysmenorrhoea [Unknown]
  - Polycystic ovaries [Unknown]
  - Drug tolerance decreased [Unknown]
  - Autoimmune thyroiditis [Unknown]
  - Depressed mood [Unknown]
  - Galactorrhoea [Unknown]
  - Mental disorder [Unknown]
  - Drug ineffective [Unknown]
  - Choking [Unknown]
  - Apathy [Unknown]
  - Personality disorder [Unknown]
  - Hallucination [Unknown]
